FAERS Safety Report 17223338 (Version 2)
Quarter: 2020Q1

REPORT INFORMATION
  Report Type: Spontaneous
  Country: US (occurrence: US)
  Receive Date: 20200102
  Receipt Date: 20200206
  Transmission Date: 20200409
  Serious: Yes (Hospitalization, Other)
  Sender: FDA-Public Use
  Company Number: US-AUROBINDO-AUR-APL-2019-106648

PATIENT
  Age: 33 Year
  Sex: Male

DRUGS (3)
  1. PARACETAMOL TABLET 500MG [Suspect]
     Active Substance: ACETAMINOPHEN
     Indication: PAIN
     Dosage: 50 DOSAGE FORM, TOTAL (TAKING 50, 500 MG ACETAMINOPHEN TABLETS OVER THE PRECEDING TWO DAYS)
     Route: 065
  2. QUETIAPINE. [Concomitant]
     Active Substance: QUETIAPINE
     Indication: PRODUCT USED FOR UNKNOWN INDICATION
     Dosage: UNK
     Route: 065
  3. GABAPENTIN. [Concomitant]
     Active Substance: GABAPENTIN
     Indication: PRODUCT USED FOR UNKNOWN INDICATION
     Dosage: UNK
     Route: 065

REACTIONS (9)
  - Electrocardiogram QT prolonged [Unknown]
  - Intentional overdose [Recovering/Resolving]
  - Hepatotoxicity [Recovering/Resolving]
  - Abdominal pain [Recovering/Resolving]
  - International normalised ratio increased [Recovered/Resolved]
  - Blood lactic acid increased [Unknown]
  - Tachycardia [Recovering/Resolving]
  - Toxicity to various agents [Recovering/Resolving]
  - Tachypnoea [Recovering/Resolving]
